FAERS Safety Report 19800076 (Version 1)
Quarter: 2021Q3

REPORT INFORMATION
  Report Type: Spontaneous
  Country: ES (occurrence: ES)
  Receive Date: 20210907
  Receipt Date: 20210907
  Transmission Date: 20211014
  Serious: Yes (Other)
  Sender: FDA-Public Use
  Company Number: ES-MYLANLABS-2021M1058545

PATIENT
  Age: 69 Year
  Sex: Female
  Weight: 56 kg

DRUGS (6)
  1. CEFTAZIDIMA /00559701/ [Suspect]
     Active Substance: CEFTAZIDIME
     Indication: CARDIAC OPERATION
     Dosage: UNK
     Route: 042
     Dates: start: 20201109, end: 20201109
  2. REMIFENTANILO NORMON [Suspect]
     Active Substance: REMIFENTANIL HYDROCHLORIDE
     Indication: CARDIAC OPERATION
     Dosage: UNK
     Route: 042
     Dates: start: 20201109, end: 20201109
  3. TEICOPLANINA ACCORD [Suspect]
     Active Substance: TEICOPLANIN
     Indication: CARDIAC OPERATION
     Dosage: UNK
     Route: 042
     Dates: start: 20201109, end: 20201109
  4. PROPOFOL. [Suspect]
     Active Substance: PROPOFOL
     Indication: CARDIAC OPERATION
     Dosage: UNK
     Route: 042
     Dates: start: 20201109, end: 20201109
  5. TRANEXAMIC ACID. [Suspect]
     Active Substance: TRANEXAMIC ACID
     Indication: CARDIAC OPERATION
     Dosage: 2.13 MILLIGRAM, TOTAL
     Route: 042
     Dates: start: 20201109, end: 20201109
  6. MIDAZOLAM. [Suspect]
     Active Substance: MIDAZOLAM
     Indication: CARDIAC OPERATION
     Dosage: UNK
     Route: 042
     Dates: start: 20201109, end: 20201109

REACTIONS (1)
  - Generalised tonic-clonic seizure [Recovered/Resolved]

NARRATIVE: CASE EVENT DATE: 20201109
